FAERS Safety Report 6095527-3 (Version None)
Quarter: 2009Q1

REPORT INFORMATION
  Report Type: 
  Country: None (occurrence: None)
  Receive Date: 20090227
  Receipt Date: 20080516
  Transmission Date: 20090719
  Serious: No
  Sender: FDA-Public Use
  Company Number: A0723872A

PATIENT
  Age: 46 Year
  Sex: Female

DRUGS (3)
  1. LAMICTAL [Suspect]
     Indication: BIPOLAR DISORDER
     Dosage: 250MG UNKNOWN
     Route: 048
     Dates: start: 20080109, end: 20080414
  2. PROZAC [Concomitant]
     Dosage: 20MG PER DAY
     Route: 048
     Dates: start: 20070924
  3. RITALIN [Concomitant]
     Dosage: 10MG TWICE PER DAY
     Dates: end: 20080215

REACTIONS (3)
  - ANXIETY [None]
  - HYPOKALAEMIA [None]
  - THERAPEUTIC RESPONSE DECREASED [None]
